FAERS Safety Report 10433605 (Version 1)
Quarter: 2014Q3

REPORT INFORMATION
  Report Type: Spontaneous
  Country: FR (occurrence: FR)
  Receive Date: 20140905
  Receipt Date: 20140905
  Transmission Date: 20150326
  Serious: Yes (Other)
  Sender: FDA-Public Use
  Company Number: PHHY2014FR110058

PATIENT
  Age: 57 Year
  Sex: Male

DRUGS (6)
  1. COVERAM [Concomitant]
     Active Substance: AMLODIPINE\PERINDOPRIL
  2. ESIDREX [Concomitant]
     Active Substance: HYDROCHLOROTHIAZIDE
  3. LESCOL [Suspect]
     Active Substance: FLUVASTATIN SODIUM
     Indication: ARTERITIS
     Dosage: 80 MG, DAILY
     Route: 048
     Dates: start: 2007, end: 2014
  4. VELMETIA [Concomitant]
     Active Substance: METFORMIN\SITAGLIPTIN
     Indication: TYPE 2 DIABETES MELLITUS
     Dosage: UNK UKN, UNK
  5. PLAVIX [Concomitant]
     Active Substance: CLOPIDOGREL BISULFATE
     Indication: ARTERITIS
  6. METFORMIN [Concomitant]
     Active Substance: METFORMIN HYDROCHLORIDE
     Indication: TYPE 2 DIABETES MELLITUS

REACTIONS (4)
  - Alanine aminotransferase increased [Unknown]
  - Transaminases increased [Not Recovered/Not Resolved]
  - Gamma-glutamyltransferase increased [Not Recovered/Not Resolved]
  - Aspartate aminotransferase increased [Unknown]

NARRATIVE: CASE EVENT DATE: 201408
